FAERS Safety Report 21287688 (Version 1)
Quarter: 2022Q3

REPORT INFORMATION
  Report Type: Spontaneous
  Country: US (occurrence: US)
  Receive Date: 20220902
  Receipt Date: 20220902
  Transmission Date: 20221027
  Serious: No
  Sender: FDA-Public Use
  Company Number: US-ABBVIE-22K-163-4318707-00

PATIENT
  Sex: Female

DRUGS (1)
  1. TARKA [Suspect]
     Active Substance: TRANDOLAPRIL\VERAPAMIL HYDROCHLORIDE
     Indication: Headache
     Route: 048

REACTIONS (4)
  - Off label use [Unknown]
  - Gastric disorder [Unknown]
  - Headache [Unknown]
  - Dizziness [Unknown]
